FAERS Safety Report 8848249 (Version 1)
Quarter: 2012Q4

REPORT INFORMATION
  Report Type: 
  Country: UM (occurrence: UM)
  Receive Date: 20121018
  Receipt Date: 20121018
  Transmission Date: 20130627
  Serious: Yes (Other)
  Sender: FDA-Public Use
  Company Number: UM-ROCHE-1146135

PATIENT
  Sex: Female

DRUGS (2)
  1. HERCEPTIN [Suspect]
     Indication: BREAST CANCER METASTATIC
     Route: 065
  2. GEMZAR [Suspect]
     Indication: PRODUCT USED FOR UNKNOWN INDICATION
     Route: 065

REACTIONS (2)
  - Metastases to central nervous system [Not Recovered/Not Resolved]
  - Metastases to lung [Not Recovered/Not Resolved]
